FAERS Safety Report 26037039 (Version 1)
Quarter: 2025Q4

REPORT INFORMATION
  Report Type: Spontaneous
  Country: CN (occurrence: CN)
  Receive Date: 20251112
  Receipt Date: 20251112
  Transmission Date: 20260117
  Serious: Yes (Other)
  Sender: MALLINCKRODT
  Company Number: CN-MALLINCKRODT-MNK202507024

PATIENT
  Age: 58 Year
  Sex: Male
  Weight: 91 kg

DRUGS (10)
  1. NITRIC OXIDE [Suspect]
     Active Substance: NITRIC OXIDE
     Indication: Pulmonary hypertension
     Dosage: 17 PPM
     Route: 055
  2. NITRIC OXIDE [Suspect]
     Active Substance: NITRIC OXIDE
     Dosage: UNKNOWN (REDUCED)
     Route: 055
  3. MILRINONE [Concomitant]
     Active Substance: MILRINONE
     Dosage: 0.25 UG/KG/MIN
  4. MACITENTAN [Concomitant]
     Active Substance: MACITENTAN
     Dosage: UNKNOWN
  5. DOPAMINE [Concomitant]
     Active Substance: DOPAMINE HYDROCHLORIDE
     Dosage: 5 UG/KG/MIN
  6. DOPAMINE [Concomitant]
     Active Substance: DOPAMINE HYDROCHLORIDE
     Dosage: 3 UG/KG/MIN
  7. DOPAMINE [Concomitant]
     Active Substance: DOPAMINE HYDROCHLORIDE
     Dosage: 8 UG/KG/MIN
  8. NOREPINEPHRINE [Concomitant]
     Active Substance: NOREPINEPHRINE
     Dosage: 0.12 UG/KG/MIN
  9. NOREPINEPHRINE [Concomitant]
     Active Substance: NOREPINEPHRINE
     Dosage: 0.03 UG/KG/MIN
  10. NOREPINEPHRINE [Concomitant]
     Active Substance: NOREPINEPHRINE
     Dosage: 0.2 UG/KG/MIN

REACTIONS (2)
  - Pericardial effusion [Recovering/Resolving]
  - Product use issue [Unknown]
